FAERS Safety Report 24433556 (Version 1)
Quarter: 2024Q4

REPORT INFORMATION
  Report Type: Spontaneous
  Country: PT (occurrence: PT)
  Receive Date: 20241014
  Receipt Date: 20241014
  Transmission Date: 20250114
  Serious: Yes (Other)
  Sender: MYLAN
  Company Number: PT-MYLANLABS-2024M1092437

PATIENT
  Age: 38 Year
  Sex: Male

DRUGS (4)
  1. OLANZAPINE [Suspect]
     Active Substance: OLANZAPINE
     Indication: Delusion of reference
     Dosage: 10 MILLIGRAM; BEFORE BEDTIME
     Route: 065
  2. OLANZAPINE [Suspect]
     Active Substance: OLANZAPINE
     Dosage: UNK; DRUG TAPERED BUT THEN RE-INITIATED AT REBOUND EFFECT IN ORIGINAL DOSE;
     Route: 065
  3. LORAZEPAM [Suspect]
     Active Substance: LORAZEPAM
     Indication: Delusion of reference
     Dosage: 2.5 MILLIGRAM; BEFORE BEDTIME
     Route: 065
  4. LORAZEPAM [Suspect]
     Active Substance: LORAZEPAM
     Dosage: UNK, DRUG TAPERED BUT THEN RE-INITIATED AT REBOUND EFFECT IN ORIGINAL DOSE; DRUG EVENTUALLY..
     Route: 065

REACTIONS (4)
  - Rebound effect [Recovering/Resolving]
  - Condition aggravated [Recovering/Resolving]
  - Delusion of reference [Recovering/Resolving]
  - Off label use [Unknown]
